FAERS Safety Report 6807896-4 (Version None)
Quarter: 2010Q2

REPORT INFORMATION
  Report Type: 
  Country: None (occurrence: None)
  Receive Date: 20100629
  Receipt Date: 20090321
  Transmission Date: 20101027
  Serious: No
  Sender: FDA-Public Use
  Company Number: US-PFIZER INC-2009151322

PATIENT
  Sex: Male
  Weight: 85.261 kg

DRUGS (3)
  1. TIKOSYN [Suspect]
     Indication: ATRIAL FIBRILLATION
     Dosage: 200 UG, 2X/DAY
  2. CRESTOR [Suspect]
     Dosage: 10 MG, UNK
  3. PRAVACHOL [Suspect]
     Dosage: 40 MG, UNK

REACTIONS (2)
  - MUSCLE SPASMS [None]
  - PAIN IN EXTREMITY [None]
